FAERS Safety Report 15789661 (Version 1)
Quarter: 2019Q1

REPORT INFORMATION
  Report Type: Spontaneous
  Country: US (occurrence: US)
  Receive Date: 20190104
  Receipt Date: 20190104
  Transmission Date: 20190417
  Serious: Yes (Hospitalization)
  Sender: FDA-Public Use
  Company Number: US-JNJFOC-20181235652

PATIENT
  Age: 64 Year
  Sex: Male
  Weight: 92.08 kg

DRUGS (2)
  1. XARELTO [Suspect]
     Active Substance: RIVAROXABAN
     Indication: CEREBROVASCULAR ACCIDENT PROPHYLAXIS
     Route: 048
  2. XARELTO [Suspect]
     Active Substance: RIVAROXABAN
     Indication: ATRIAL FIBRILLATION
     Route: 048

REACTIONS (4)
  - Pain [Unknown]
  - Anxiety [Not Recovered/Not Resolved]
  - Cerebrovascular accident [Unknown]
  - Mitral valve replacement [Not Recovered/Not Resolved]

NARRATIVE: CASE EVENT DATE: 201812
